FAERS Safety Report 9383587 (Version 2)
Quarter: 2014Q1

REPORT INFORMATION
  Report Type: Spontaneous
  Country: US (occurrence: US)
  Receive Date: 20130704
  Receipt Date: 20140226
  Transmission Date: 20141002
  Serious: No
  Sender: FDA-Public Use
  Company Number: US-PFIZER INC-2013197792

PATIENT
  Age: 62 Year
  Sex: Female

DRUGS (1)
  1. XELJANZ [Suspect]
     Dosage: UNK
     Dates: start: 201306

REACTIONS (4)
  - Drug ineffective [Unknown]
  - Bone disorder [Unknown]
  - Arthritis [Unknown]
  - Spondylitis [Unknown]
